FAERS Safety Report 6802031 (Version 15)
Quarter: 2012Q4

REPORT INFORMATION
  Report Type: 
  Country: US (occurrence: US)
  Receive Date: 20081103
  Receipt Date: 20121018
  Transmission Date: 20130627
  Serious: Yes (Hospitalization, Other)
  Sender: FDA-Public Use
  Company Number: US-ROCHE-577338

PATIENT
  Age: 16 Year
  Sex: Male
  Weight: 108.9 kg

DRUGS (3)
  1. ACCUTANE [Suspect]
     Indication: ACNE CYSTIC
     Route: 048
     Dates: start: 20030324, end: 20030409
  2. ACCUTANE [Suspect]
     Route: 048
     Dates: start: 20030410, end: 20030908
  3. TAZORAC [Concomitant]
     Indication: ACNE CYSTIC
     Route: 065

REACTIONS (17)
  - Hypertrophic anal papilla [Unknown]
  - Arthropathy [Unknown]
  - Colitis ulcerative [Not Recovered/Not Resolved]
  - Proctocolitis [Unknown]
  - Inflammatory bowel disease [Unknown]
  - Depression [Unknown]
  - Clostridium difficile colitis [Recovered/Resolved]
  - Crohn^s disease [Unknown]
  - Intestinal obstruction [Unknown]
  - Anal stenosis [Unknown]
  - Osteopenia [Unknown]
  - Ileus [Unknown]
  - Anaemia [Not Recovered/Not Resolved]
  - Lip dry [Unknown]
  - Blood triglycerides increased [Recovering/Resolving]
  - Blood cholesterol increased [Recovered/Resolved]
  - Malnutrition [Unknown]
